FAERS Safety Report 7077178-7 (Version None)
Quarter: 2010Q4

REPORT INFORMATION
  Report Type: 
  Country: None (occurrence: None)
  Receive Date: 20101101
  Receipt Date: 20101026
  Transmission Date: 20110411
  Serious: Yes (Other)
  Sender: FDA-Public Use
  Company Number: B0681213A

PATIENT
  Age: 45 Year
  Sex: Female

DRUGS (1)
  1. ZYBAN [Suspect]
     Indication: SMOKING CESSATION THERAPY
     Route: 048
     Dates: start: 20101010, end: 20101011

REACTIONS (3)
  - ANXIETY [None]
  - DEPRESSED MOOD [None]
  - TEARFULNESS [None]
